FAERS Safety Report 21802535 (Version 1)
Quarter: 2022Q4

REPORT INFORMATION
  Report Type: Spontaneous
  Country: FR (occurrence: FR)
  Receive Date: 20221231
  Receipt Date: 20221231
  Transmission Date: 20230113
  Serious: Yes (Life-Threatening, Other)
  Sender: FDA-Public Use
  Company Number: FR-DENTSPLY-2022SCDP000362

PATIENT
  Age: 73 Year
  Sex: Male

DRUGS (9)
  1. EPINEPHRINE BITARTRATE\LIDOCAINE HYDROCHLORIDE [Suspect]
     Active Substance: EPINEPHRINE BITARTRATE\LIDOCAINE HYDROCHLORIDE
     Indication: General anaesthesia
     Dosage: 60 MILLIGRAM TOTAL
     Route: 042
     Dates: start: 20220805, end: 20220805
  2. ULTIVA [Suspect]
     Active Substance: REMIFENTANIL HYDROCHLORIDE
     Indication: General anaesthesia
     Dosage: 100 MICROGRAM TOTAL
     Route: 042
     Dates: start: 20220805, end: 20220805
  3. IOMERON [Suspect]
     Active Substance: IOMEPROL
     Indication: Imaging procedure
     Dosage: UNK
     Route: 042
     Dates: start: 20220805, end: 20220805
  4. PROPOFOL [Suspect]
     Active Substance: PROPOFOL
     Indication: General anaesthesia
     Dosage: 100 MILLIGRAM TOTAL
     Route: 042
     Dates: start: 20220805, end: 20220805
  5. KETAMINE [Suspect]
     Active Substance: KETAMINE
     Indication: General anaesthesia
     Dosage: 20 MILLIGRAM TOTAL
     Route: 042
     Dates: start: 20220805, end: 20220805
  6. ACUPAN [Suspect]
     Active Substance: NEFOPAM HYDROCHLORIDE
     Indication: Procedural pain
     Dosage: 20 MILLIGRAM TOTAL ACUPAN SOLUTION FOR INJECTION
     Route: 042
     Dates: start: 20220805, end: 20220805
  7. PHLOROGLUCINOL\1,3,5-TRIMETHOXYBENZENE [Suspect]
     Active Substance: PHLOROGLUCINOL\1,3,5-TRIMETHOXYBENZENE
     Indication: Procedural pain
     Dosage: 80 MILLIGRAM TOTAL SPASFON, SOLUTION FOR INJECTION IN AMPOULE
     Route: 042
     Dates: start: 20220805, end: 20220805
  8. KETOPROFEN [Suspect]
     Active Substance: KETOPROFEN
     Indication: Procedural pain
     Dosage: 100 MILLIGRAM TOTAL
     Route: 042
     Dates: start: 20220805, end: 20220805
  9. CEFAZOLIN [Suspect]
     Active Substance: CEFAZOLIN
     Indication: Antibiotic prophylaxis
     Dosage: 2 GRAM TOTAL
     Route: 042
     Dates: start: 20220805, end: 20220805

REACTIONS (1)
  - Type I hypersensitivity [Recovered/Resolved]

NARRATIVE: CASE EVENT DATE: 20220805
